FAERS Safety Report 14782030 (Version 1)
Quarter: 2018Q2

REPORT INFORMATION
  Report Type: Spontaneous
  Country: CA (occurrence: CA)
  Receive Date: 20180420
  Receipt Date: 20180420
  Transmission Date: 20180711
  Serious: Yes (Other)
  Sender: FDA-Public Use
  Company Number: CA-ORION CORPORATION ORION PHARMA-TREX2018-1168

PATIENT
  Sex: Female

DRUGS (8)
  1. ENBREL [Suspect]
     Active Substance: ETANERCEPT
     Indication: RHEUMATOID ARTHRITIS
     Route: 058
  2. METHOTREXATE (TRADE NAME UNKNOWN) [Suspect]
     Active Substance: METHOTREXATE
     Indication: RHEUMATOID ARTHRITIS
     Route: 065
  3. HYDROXYCHLOROQUINE [Suspect]
     Active Substance: HYDROXYCHLOROQUINE
     Route: 065
  4. APO-LEFLUNOMIDE [Suspect]
     Active Substance: LEFLUNOMIDE
     Route: 065
  5. REMICADE [Suspect]
     Active Substance: INFLIXIMAB
     Route: 065
  6. ADALIMUMAB [Suspect]
     Active Substance: ADALIMUMAB
     Route: 058
  7. STELARA [Suspect]
     Active Substance: USTEKINUMAB
     Route: 065
  8. APO SULFASLAZINE [Suspect]
     Active Substance: SULFASALAZINE
     Route: 065

REACTIONS (8)
  - Drug ineffective [Recovering/Resolving]
  - Drug intolerance [Recovering/Resolving]
  - Rheumatoid arthritis [Recovering/Resolving]
  - Nausea [Recovering/Resolving]
  - Retinitis [Recovering/Resolving]
  - Mobility decreased [Recovering/Resolving]
  - Crohn^s disease [Recovering/Resolving]
  - Drug effect incomplete [Recovering/Resolving]
